FAERS Safety Report 9328791 (Version 1)
Quarter: 2013Q2

REPORT INFORMATION
  Report Type: Report from Study
  Country: CA (occurrence: CA)
  Receive Date: 20130604
  Receipt Date: 20130604
  Transmission Date: 20140414
  Serious: Yes (Other)
  Sender: FDA-Public Use
  Company Number: CA-JNJFOC-20130522053

PATIENT
  Age: 66 Year
  Sex: Male

DRUGS (9)
  1. SIMPONI [Suspect]
     Indication: ANKYLOSING SPONDYLITIS
     Route: 058
     Dates: start: 20111007
  2. INDOCID [Concomitant]
     Route: 054
     Dates: end: 20130514
  3. METHOTREXATE [Concomitant]
     Route: 058
  4. ALLOPURINOL [Concomitant]
     Route: 048
  5. FOLIC ACID [Concomitant]
     Route: 048
  6. CARVEDILOL [Concomitant]
     Route: 048
  7. NEXIUM [Concomitant]
     Route: 048
  8. COUMADIN [Concomitant]
     Route: 048
  9. LISINOPRIL [Concomitant]
     Route: 048

REACTIONS (2)
  - Renal impairment [Unknown]
  - Pyrexia [Unknown]
